FAERS Safety Report 26053535 (Version 3)
Quarter: 2025Q4

REPORT INFORMATION
  Report Type: Spontaneous
  Country: US (occurrence: US)
  Receive Date: 20251117
  Receipt Date: 20251230
  Transmission Date: 20260118
  Serious: No
  Sender: VERTEX
  Company Number: US-VERTEX PHARMACEUTICALS-2025-018790

PATIENT

DRUGS (2)
  1. JOURNAVX [Suspect]
     Active Substance: SUZETRIGINE
     Indication: Pain
     Dosage: 100 MG (STARTING DOSE)
     Route: 061
     Dates: start: 20251014, end: 20251014
  2. JOURNAVX [Suspect]
     Active Substance: SUZETRIGINE
     Dosage: 50 MG, BID
     Route: 061
     Dates: start: 202510, end: 20251018

REACTIONS (5)
  - Hallucination [Unknown]
  - Hyperhidrosis [Unknown]
  - Confusional state [Unknown]
  - Abnormal dreams [Unknown]
  - Drug ineffective [Unknown]

NARRATIVE: CASE EVENT DATE: 20251001
